FAERS Safety Report 5717216-4 (Version None)
Quarter: 2008Q2

REPORT INFORMATION
  Report Type: 
  Country: None (occurrence: None)
  Receive Date: 20080423
  Receipt Date: 20080417
  Transmission Date: 20081010
  Serious: Yes (Hospitalization, Disabling)
  Sender: FDA-Public Use
  Company Number: SP01888

PATIENT
  Age: 54 Year
  Sex: Male

DRUGS (2)
  1. XIFAXAN [Suspect]
     Indication: DIARRHOEA INFECTIOUS
     Dosage: 600 MG (200 MG, 3 IN 1 D), ORAL
     Route: 048
     Dates: start: 20080413, end: 20080417
  2. FLAGYL [Concomitant]

REACTIONS (5)
  - ABDOMINAL PAIN [None]
  - DEAFNESS UNILATERAL [None]
  - DIARRHOEA [None]
  - MIDDLE EAR EFFUSION [None]
  - VERTIGO [None]
